FAERS Safety Report 24754891 (Version 1)
Quarter: 2024Q4

REPORT INFORMATION
  Report Type: Spontaneous
  Country: US (occurrence: US)
  Receive Date: 20241219
  Receipt Date: 20241219
  Transmission Date: 20250114
  Serious: Yes (Other)
  Sender: COOPERSURGICAL
  Company Number: US-COOPERSURGICAL, INC.-2024CPS003989

PATIENT
  Age: 45 Year
  Sex: Female
  Weight: 63.946 kg

DRUGS (2)
  1. PARAGARD T 380A [Suspect]
     Active Substance: COPPER
     Indication: Contraception
     Dosage: UNK
     Route: 015
     Dates: start: 20100805
  2. LORATADINE [Concomitant]
     Active Substance: LORATADINE

REACTIONS (12)
  - Uterine leiomyoma [Unknown]
  - Device breakage [Recovered/Resolved]
  - Foreign body in reproductive tract [Recovered/Resolved]
  - Complication of device removal [Recovered/Resolved]
  - Fear [Recovered/Resolved]
  - Sinusitis [Unknown]
  - Emotional disorder [Unknown]
  - Depression [Unknown]
  - Anxiety [Unknown]
  - Device dislocation [Recovered/Resolved]
  - Abnormal uterine bleeding [Unknown]
  - Pain [Recovered/Resolved]

NARRATIVE: CASE EVENT DATE: 20171001
